FAERS Safety Report 8501415-2 (Version None)
Quarter: 2012Q3

REPORT INFORMATION
  Report Type: 
  Country: None (occurrence: None)
  Receive Date: 20120710
  Receipt Date: 20120314
  Transmission Date: 20120928
  Serious: Yes (Death)
  Sender: FDA-Public Use
  Company Number: VN-BAXTER-2012BAX010282

PATIENT
  Sex: Male

DRUGS (1)
  1. DIANEAL [Suspect]
     Route: 033
     Dates: start: 20120112

REACTIONS (1)
  - CEREBROVASCULAR ACCIDENT [None]
